FAERS Safety Report 18985583 (Version 1)
Quarter: 2021Q1

REPORT INFORMATION
  Report Type: Spontaneous
  Country: US (occurrence: US)
  Receive Date: 20210309
  Receipt Date: 20210309
  Transmission Date: 20210420
  Serious: Yes (Other)
  Sender: FDA-Public Use
  Company Number: US-PFIZER INC-2021235571

PATIENT
  Age: 46 Year
  Sex: Male
  Weight: 68.7 kg

DRUGS (1)
  1. ZOSYN [Suspect]
     Active Substance: PIPERACILLIN SODIUM\TAZOBACTAM SODIUM
     Dosage: UNK, SINGLE DOSE

REACTIONS (2)
  - Peritonitis bacterial [Unknown]
  - Neutropenia [Unknown]
